FAERS Safety Report 5952245-7 (Version None)
Quarter: 2008Q4

REPORT INFORMATION
  Report Type: 
  Country: None (occurrence: None)
  Receive Date: 20081113
  Receipt Date: 20081103
  Transmission Date: 20090506
  Serious: Yes (Hospitalization, Disabling)
  Sender: FDA-Public Use
  Company Number: PT-ELI_LILLY_AND_COMPANY-PT200811000351

PATIENT
  Sex: Female
  Weight: 57.6 kg

DRUGS (8)
  1. HUMALOG [Suspect]
     Indication: DIABETES MELLITUS
     Dosage: 12 IU, 2/D
     Route: 058
     Dates: start: 20080717
  2. INSULIN GLARGINE [Concomitant]
     Indication: DIABETES MELLITUS
     Dosage: 20 D/F, UNK
     Route: 058
     Dates: start: 20080208
  3. NATEGLINIDE [Concomitant]
     Indication: DIABETES MELLITUS
     Dosage: 360 MG, UNK
     Route: 048
     Dates: start: 20080208
  4. EPROSARTAN [Concomitant]
     Indication: HYPERTENSION
     Dosage: 600 MG, UNK
     Route: 048
     Dates: start: 20080130
  5. INDAPAMIDE [Concomitant]
     Indication: HYPERTENSION
     Dosage: 1.5 MG, UNK
     Route: 048
     Dates: start: 20080130
  6. AMLODIPINE [Concomitant]
     Indication: HYPERTENSION
     Dosage: 10 MG, UNK
     Route: 048
     Dates: start: 20080130
  7. ROSUVASTATIN [Concomitant]
     Indication: DYSLIPIDAEMIA
     Dosage: 10 MG, UNK
     Route: 048
  8. TRIFLUSAL [Concomitant]
     Dosage: 600 MG, UNK
     Route: 048
     Dates: start: 20080202

REACTIONS (1)
  - ISCHAEMIC STROKE [None]
